FAERS Safety Report 23222737 (Version 1)
Quarter: 2023Q4

REPORT INFORMATION
  Report Type: Spontaneous
  Country: AU (occurrence: AU)
  Receive Date: 20231123
  Receipt Date: 20231123
  Transmission Date: 20240109
  Serious: No
  Sender: FDA-Public Use
  Company Number: AU-SANDOZ-SDZ2023AU009002

PATIENT
  Sex: Female

DRUGS (1)
  1. OMNITROPE [Suspect]
     Active Substance: SOMATROPIN
     Indication: Product used for unknown indication
     Dosage: UNK
     Route: 065

REACTIONS (3)
  - Injection site pain [Unknown]
  - Device difficult to use [Unknown]
  - Product leakage [Unknown]
